FAERS Safety Report 21935559 (Version 1)
Quarter: 2023Q1

REPORT INFORMATION
  Report Type: Spontaneous
  Country: US (occurrence: US)
  Receive Date: 20230201
  Receipt Date: 20230201
  Transmission Date: 20230418
  Serious: No
  Sender: FDA-Public Use
  Company Number: US-SA-SAC20230131000146

PATIENT
  Age: 41 Year
  Sex: Male

DRUGS (1)
  1. DUPIXENT [Suspect]
     Active Substance: DUPILUMAB
     Dosage: 300 MG, OTHER
     Route: 058
     Dates: start: 202210, end: 20221026

REACTIONS (6)
  - Joint stiffness [Recovering/Resolving]
  - Skin swelling [Recovering/Resolving]
  - Carpal tunnel syndrome [Recovering/Resolving]
  - Dizziness [Recovering/Resolving]
  - Injection site bruising [Recovering/Resolving]
  - Rash [Recovering/Resolving]
